FAERS Safety Report 5108227-0 (Version None)
Quarter: 2006Q3

REPORT INFORMATION
  Report Type: 
  Country: None (occurrence: None)
  Receive Date: 20060914
  Receipt Date: 20060914
  Transmission Date: 20061208
  Serious: Yes (Hospitalization)
  Sender: FDA-Public Use
  Company Number: None

PATIENT
  Age: 47 Year
  Sex: Male

DRUGS (5)
  1. VANCOMYCIN [Suspect]
     Indication: ARTHRITIS INFECTIVE
     Dosage: 1 GM IV DAILY
     Dates: start: 20060614, end: 20060701
  2. PERCOCET [Concomitant]
  3. OXYCODONE HCL [Concomitant]
  4. COLACE [Concomitant]
  5. COUMADIN [Concomitant]

REACTIONS (1)
  - RASH PRURITIC [None]
